FAERS Safety Report 7979169-8 (Version None)
Quarter: 2011Q4

REPORT INFORMATION
  Report Type: 
  Country: None (occurrence: None)
  Receive Date: 20111205
  Receipt Date: 20111128
  Transmission Date: 20120403
  Serious: Yes (Other)
  Sender: FDA-Public Use
  Company Number: 2011SP050893

PATIENT
  Age: 57 Year
  Sex: Female

DRUGS (10)
  1. LEXAPRO [Concomitant]
  2. SAPHRIS [Suspect]
     Indication: BIPOLAR DISORDER
     Dosage: 5 MG;HS;SL ; 10 MG;HS;SL
     Route: 060
     Dates: start: 20111006, end: 20111013
  3. SAPHRIS [Suspect]
     Indication: DEPRESSION
     Dosage: 5 MG;HS;SL ; 10 MG;HS;SL
     Route: 060
     Dates: start: 20111006, end: 20111013
  4. SAPHRIS [Suspect]
     Indication: BIPOLAR DISORDER
     Dosage: 5 MG;HS;SL ; 10 MG;HS;SL
     Route: 060
     Dates: start: 20110929, end: 20111006
  5. SAPHRIS [Suspect]
     Indication: DEPRESSION
     Dosage: 5 MG;HS;SL ; 10 MG;HS;SL
     Route: 060
     Dates: start: 20110929, end: 20111006
  6. CRESTOR [Concomitant]
  7. ALENE [Concomitant]
  8. LAMICTAL [Concomitant]
  9. ANAFRANIL [Concomitant]
  10. XANAX [Concomitant]

REACTIONS (3)
  - DEPRESSION [None]
  - MANIA [None]
  - HYPOMANIA [None]
